FAERS Safety Report 9853575 (Version 1)
Quarter: 2014Q1

REPORT INFORMATION
  Report Type: Spontaneous
  Country: US (occurrence: US)
  Receive Date: 20140129
  Receipt Date: 20140129
  Transmission Date: 20141002
  Serious: No
  Sender: FDA-Public Use
  Company Number: US-TARO-2013P1020450

PATIENT
  Age: 72 Year
  Sex: Male
  Weight: 86.18 kg

DRUGS (6)
  1. KETOCONAZOLE CREAM 2% [Suspect]
     Route: 061
     Dates: start: 201308
  2. CRESTOR [Concomitant]
  3. FISH OIL [Concomitant]
  4. MULTIVITAMIN [Concomitant]
  5. RED LEAF OR RICE SUPPLEMENT [Concomitant]
  6. CLOBETASOL PROPIONATE CREAM USP 0.05% [Concomitant]

REACTIONS (4)
  - Nail discolouration [Unknown]
  - Burning sensation [Unknown]
  - Paraesthesia [Unknown]
  - Dry skin [Recovering/Resolving]
